FAERS Safety Report 11618661 (Version 2)
Quarter: 2015Q4

REPORT INFORMATION
  Report Type: Spontaneous
  Country: TR (occurrence: TR)
  Receive Date: 20151012
  Receipt Date: 20151024
  Transmission Date: 20160304
  Serious: Yes (Other)
  Sender: FDA-Public Use
  Company Number: TR-ACCORD-034352

PATIENT
  Age: 13 Year
  Sex: Female

DRUGS (1)
  1. LEVETIRACETAM. [Suspect]
     Active Substance: LEVETIRACETAM
     Indication: SEIZURE
     Dosage: DOSE WAS INCREASED TO 20 MG/KG/DAY (500 MG/DAY)

REACTIONS (1)
  - Rhabdomyolysis [Recovered/Resolved]
